FAERS Safety Report 16162334 (Version 3)
Quarter: 2019Q2

REPORT INFORMATION
  Report Type: Report from Study
  Country: GB (occurrence: GB)
  Receive Date: 20190405
  Receipt Date: 20190501
  Transmission Date: 20190711
  Serious: Yes (Hospitalization)
  Sender: FDA-Public Use
  Company Number: GB-ROCHE-2292752

PATIENT
  Sex: Female

DRUGS (8)
  1. LANSOPRAZOLE. [Concomitant]
     Active Substance: LANSOPRAZOLE
  2. ROACTEMRA [Suspect]
     Active Substance: TOCILIZUMAB
     Indication: TEMPORAL ARTERITIS
     Route: 058
     Dates: start: 20190219
  3. PREDNISOLONE. [Concomitant]
     Active Substance: PREDNISOLONE
  4. FERROUS SULPHATE [FERROUS SULFATE] [Concomitant]
     Active Substance: FERROUS SULFATE
  5. ROACTEMRA [Suspect]
     Active Substance: TOCILIZUMAB
     Indication: RHEUMATOID ARTHRITIS
     Route: 058
     Dates: start: 20190204
  6. CLOPIDOGREL [Concomitant]
     Active Substance: CLOPIDOGREL BISULFATE
  7. AMLODIPINE [Concomitant]
     Active Substance: AMLODIPINE BESYLATE
  8. FENOFIBRATE. [Concomitant]
     Active Substance: FENOFIBRATE

REACTIONS (10)
  - Cough [Unknown]
  - Urinary tract infection [Unknown]
  - Dizziness [Unknown]
  - Malaise [Unknown]
  - Infection [Not Recovered/Not Resolved]
  - Candida infection [Unknown]
  - Condition aggravated [Unknown]
  - Epistaxis [Unknown]
  - Oropharyngeal pain [Unknown]
  - Skin ulcer [Unknown]

NARRATIVE: CASE EVENT DATE: 20190310
